FAERS Safety Report 21109331 (Version 3)
Quarter: 2022Q3

REPORT INFORMATION
  Report Type: Other
  Country: GB (occurrence: None)
  Receive Date: 20220721
  Receipt Date: 20220922
  Transmission Date: 20221027
  Serious: Yes (Other)
  Sender: FDA-Public Use
  Company Number: GB-ROCHE-2283986

PATIENT
  Age: 58 Year
  Sex: Female

DRUGS (17)
  1. TRASTUZUMAB [Suspect]
     Active Substance: TRASTUZUMAB
     Indication: HER2 positive breast cancer
     Dosage: LOADING DOSE, 1 CYCLE PER REGIMEN, DOSE MODIFIED
     Route: 042
     Dates: start: 20161115, end: 20161115
  2. TRASTUZUMAB [Suspect]
     Active Substance: TRASTUZUMAB
     Dosage: DOSE MODIFIED
     Route: 042
     Dates: start: 20161207, end: 20170301
  3. TRASTUZUMAB [Suspect]
     Active Substance: TRASTUZUMAB
     Dosage: MODIFIED DUE TO WEIGHT LOSS
     Route: 042
     Dates: start: 20170301, end: 20170301
  4. TRASTUZUMAB [Suspect]
     Active Substance: TRASTUZUMAB
     Dosage: MODIFIED DUE TO WEIGHT INCREASE
     Route: 042
     Dates: start: 20170322
  5. PERTUZUMAB [Suspect]
     Active Substance: PERTUZUMAB
     Indication: HER2 positive breast cancer
     Dosage: LOADING DOSE, DOSE MODIFIED
     Route: 042
     Dates: start: 20161115, end: 20161115
  6. PERTUZUMAB [Suspect]
     Active Substance: PERTUZUMAB
     Dosage: 18 CYCLES PER REGIMEN
     Route: 042
     Dates: start: 20161207
  7. DOCETAXEL [Suspect]
     Active Substance: DOCETAXEL
     Indication: HER2 positive breast cancer
     Dosage: 6 CYCLES PER REGIMEN?DRUG DISCONTINUED AS PLANNED NUMBER OF CYCLES COMPLETED.
     Route: 042
     Dates: start: 20161116, end: 20170301
  8. CALCIUM CARBONATE [Concomitant]
     Active Substance: CALCIUM CARBONATE
     Route: 048
     Dates: start: 20130613
  9. LOPERAMIDE [Concomitant]
     Active Substance: LOPERAMIDE
     Indication: Adverse event
     Route: 048
     Dates: start: 20161207
  10. OMEPRAZOLE [Concomitant]
     Active Substance: OMEPRAZOLE
     Route: 048
     Dates: start: 20161207
  11. DEXAMETHASONE [Concomitant]
     Active Substance: DEXAMETHASONE
     Dosage: TO BE TAKEN AT EACH CHEMOTHERAPY CYCLE DAY BEFORE TREATMENT, DAY OF TREATMENT AND DAY AFTER
     Route: 048
     Dates: start: 20161229
  12. FILGRASTIM [Concomitant]
     Active Substance: FILGRASTIM
     Dosage: FOR 7 DAYS 24 HOURS POST CHEMOTHERAPY
     Route: 058
     Dates: start: 20161231
  13. HYDROCORTISONE [Concomitant]
     Active Substance: HYDROCORTISONE
     Dosage: PRIOR TO CHEMOTHERAPY TREATMENT
     Route: 042
     Dates: start: 20161207
  14. CHLORPHENIRAMINE MALEATE [Concomitant]
     Active Substance: CHLORPHENIRAMINE MALEATE
     Dosage: PRIOR TO CHEMOTHERAPY TREATMENT
     Route: 042
     Dates: start: 20161207
  15. ONDANSETRON [Concomitant]
     Active Substance: ONDANSETRON
     Dosage: PRIOR TO CHEMOTHERAPY
     Route: 042
     Dates: start: 20161207
  16. METOCLOPRAMIDE [Concomitant]
     Active Substance: METOCLOPRAMIDE
     Route: 048
     Dates: start: 20161207
  17. LETROZOLE [Concomitant]
     Active Substance: LETROZOLE
     Route: 048
     Dates: start: 20130612

REACTIONS (5)
  - Syncope [Recovered/Resolved]
  - Amnesia [Unknown]
  - Swelling [Recovered/Resolved]
  - Pruritus [Recovered/Resolved]
  - Cerebral small vessel ischaemic disease [Not Recovered/Not Resolved]

NARRATIVE: CASE EVENT DATE: 20190117
